FAERS Safety Report 11116160 (Version 1)
Quarter: 2015Q2

REPORT INFORMATION
  Report Type: Spontaneous
  Country: US (occurrence: US)
  Receive Date: 20150515
  Receipt Date: 20150515
  Transmission Date: 20150821
  Serious: No
  Sender: FDA-Public Use
  Company Number: US-009507513-1505USA000765

PATIENT
  Sex: Male

DRUGS (1)
  1. NOXAFIL [Suspect]
     Active Substance: POSACONAZOLE
     Dosage: 300 MG, QD
     Route: 048

REACTIONS (6)
  - Pain [Unknown]
  - Depressed mood [Unknown]
  - Mood altered [Unknown]
  - Fatigue [Unknown]
  - Abnormal behaviour [Unknown]
  - Agitation [Unknown]
